FAERS Safety Report 22193837 (Version 2)
Quarter: 2023Q2

REPORT INFORMATION
  Report Type: Report from Study
  Country: US (occurrence: US)
  Receive Date: 20230410
  Receipt Date: 20230414
  Transmission Date: 20230722
  Serious: Yes (Hospitalization)
  Sender: FDA-Public Use
  Company Number: US-BEIGENE-BGN-2023-000102

PATIENT

DRUGS (3)
  1. BRUKINSA [Suspect]
     Active Substance: ZANUBRUTINIB
     Indication: Lymphoma
     Dosage: 160 MILLIGRAM, BID
     Route: 048
     Dates: start: 20221019
  2. BRUKINSA [Suspect]
     Active Substance: ZANUBRUTINIB
     Dosage: 160 MILLIGRAM, BID
     Route: 048
     Dates: start: 20221019
  3. BRUKINSA [Suspect]
     Active Substance: ZANUBRUTINIB
     Dosage: 160 MILLIGRAM, BID
     Route: 048
     Dates: start: 20221019, end: 20230322

REACTIONS (15)
  - Fall [Unknown]
  - Traumatic intracranial haemorrhage [Unknown]
  - Pulmonary oedema [Unknown]
  - Mass [Unknown]
  - Fracture [Unknown]
  - Joint dislocation [Unknown]
  - Respiratory syncytial virus infection [Unknown]
  - Alopecia [Unknown]
  - Impaired healing [Unknown]
  - Nasopharyngitis [Unknown]
  - Hypersensitivity [Unknown]
  - Blood urine present [Unknown]
  - Bronchitis [Unknown]
  - Malaise [Unknown]
  - Off label use [Unknown]
